FAERS Safety Report 7154093-1 (Version None)
Quarter: 2010Q4

REPORT INFORMATION
  Report Type: 
  Country: None (occurrence: None)
  Receive Date: 20101124
  Receipt Date: 20101115
  Transmission Date: 20110411
  Serious: Yes (Hospitalization)
  Sender: FDA-Public Use
  Company Number: 108916

PATIENT
  Age: 20 Year
  Sex: Male

DRUGS (1)
  1. ETOMIDATE [Suspect]
     Indication: ELECTROCONVULSIVE THERAPY
     Dosage: 16MG

REACTIONS (1)
  - GRAND MAL CONVULSION [None]
